FAERS Safety Report 24252930 (Version 8)
Quarter: 2025Q1

REPORT INFORMATION
  Report Type: Report from Study
  Country: CN (occurrence: CN)
  Receive Date: 20240827
  Receipt Date: 20250117
  Transmission Date: 20250408
  Serious: Yes (Hospitalization)
  Sender: DR REDDYS
  Company Number: CN-RDY-CLI/CHN/24/0012356

PATIENT
  Age: 15 Month
  Sex: Male
  Weight: 11.1 kg

DRUGS (7)
  1. VIGABATRIN [Suspect]
     Active Substance: VIGABATRIN
     Indication: Infantile spasms
     Dosage: IN 5 ML PER TIME
     Route: 048
     Dates: start: 20240704, end: 20240704
  2. VIGABATRIN [Suspect]
     Active Substance: VIGABATRIN
     Dosage: 2 BAGS USED PER DAY, 5ML/TIME, ADJUSTED TO 75MG/KG/D(7.5ML/TIME) IN THE AFTERNOON OF JULY 7,2024
     Route: 048
     Dates: start: 20240705, end: 20240707
  3. VIGABATRIN [Suspect]
     Active Substance: VIGABATRIN
     Dosage: 2 BAGS USED PER DAY IN 5 ML
     Route: 048
     Dates: start: 20240710, end: 20240717
  4. VIGABATRIN [Suspect]
     Active Substance: VIGABATRIN
     Dosage: 2 BAGS USED PER DAY
     Route: 048
     Dates: start: 20240708, end: 20240709
  5. VIGABATRIN [Suspect]
     Active Substance: VIGABATRIN
     Dosage: IN 5 ML PER TIME
     Route: 048
     Dates: start: 20240718, end: 20240802
  6. VIGABATRIN [Suspect]
     Active Substance: VIGABATRIN
     Dosage: IN 5 ML PER TIME
     Route: 048
     Dates: start: 20240803, end: 20240830
  7. VIGABATRIN [Suspect]
     Active Substance: VIGABATRIN
     Dosage: IN 5 ML PER TIME
     Route: 048
     Dates: start: 20240831, end: 20240925

REACTIONS (5)
  - Pneumonia mycoplasmal [Recovered/Resolved]
  - Adenovirus infection [Recovered/Resolved]
  - Pneumonia [Recovered/Resolved]
  - Cough [Recovered/Resolved]
  - Laryngitis [Recovered/Resolved]

NARRATIVE: CASE EVENT DATE: 20240801
